FAERS Safety Report 11597030 (Version 1)
Quarter: 2015Q4

REPORT INFORMATION
  Report Type: Report from Study
  Country: GB (occurrence: GB)
  Receive Date: 20151006
  Receipt Date: 20151006
  Transmission Date: 20160304
  Serious: Yes (Other)
  Sender: FDA-Public Use
  Company Number: GB-ROCHE-1641219

PATIENT
  Age: 72 Year
  Sex: Female

DRUGS (4)
  1. PERTUZUMAB [Suspect]
     Active Substance: PERTUZUMAB
     Indication: BREAST CANCER METASTATIC
     Route: 042
     Dates: start: 20150603, end: 20150807
  2. TRASTUZUMAB [Suspect]
     Active Substance: TRASTUZUMAB
     Route: 042
     Dates: start: 20150603, end: 20150804
  3. TRASTUZUMAB [Suspect]
     Active Substance: TRASTUZUMAB
     Route: 042
     Dates: start: 20150818
  4. TRASTUZUMAB [Suspect]
     Active Substance: TRASTUZUMAB
     Indication: BREAST CANCER METASTATIC
     Dosage: LOADING DOSE
     Route: 042
     Dates: start: 20150513, end: 20150513

REACTIONS (1)
  - Anaphylactic reaction [Recovering/Resolving]

NARRATIVE: CASE EVENT DATE: 20150807
